FAERS Safety Report 16286612 (Version 1)
Quarter: 2019Q2

REPORT INFORMATION
  Report Type: Spontaneous
  Country: US (occurrence: US)
  Receive Date: 20190507
  Receipt Date: 20190507
  Transmission Date: 20190711
  Serious: Yes (Hospitalization)
  Sender: FDA-Public Use
  Company Number: None

PATIENT
  Age: 64 Year
  Sex: Male
  Weight: 133.74 kg

DRUGS (9)
  1. HYDRALAZINE  50MG TAB [Concomitant]
     Dates: start: 20130102
  2. VICTOZA [Suspect]
     Active Substance: LIRAGLUTIDE
     Indication: TYPE 2 DIABETES MELLITUS
     Route: 058
     Dates: start: 20190301, end: 20190320
  3. GLIMEPIRIDE 2MG TAB [Concomitant]
     Dates: start: 20150420
  4. METOPROLOL SUCCINATE 50 MG TABS [Concomitant]
     Dates: start: 20170914
  5. LISINOPRIL 40MG TAB [Concomitant]
     Dates: start: 20130415
  6. HYDROCHLOROTHIAZIDE. [Concomitant]
     Active Substance: HYDROCHLOROTHIAZIDE
     Dates: start: 20130415
  7. CLONIDINE 0.2 MG TAB [Concomitant]
     Dates: start: 20130103
  8. ATORVASTATIN 80MG TAB [Concomitant]
     Dates: start: 20181104
  9. TRIAMCINOLONE 0.1% CREAM [Concomitant]
     Dates: start: 20190423

REACTIONS (3)
  - Acute kidney injury [None]
  - Hypotension [None]
  - Vomiting [None]

NARRATIVE: CASE EVENT DATE: 20190318
